FAERS Safety Report 14217300 (Version 2)
Quarter: 2018Q1

REPORT INFORMATION
  Report Type: Spontaneous
  Country: CZ (occurrence: CZ)
  Receive Date: 20171123
  Receipt Date: 20180223
  Transmission Date: 20180508
  Serious: Yes (Death, Life-Threatening, Hospitalization)
  Sender: FDA-Public Use
  Company Number: CZ-ROCHE-2026170

PATIENT
  Age: 68 Year
  Sex: Male

DRUGS (15)
  1. ZELBORAF [Suspect]
     Active Substance: VEMURAFENIB
     Indication: METASTATIC MALIGNANT MELANOMA
     Route: 048
     Dates: start: 20171005, end: 20171019
  2. BISOPROLOL [Concomitant]
     Active Substance: BISOPROLOL
     Route: 048
  3. ZAHRON [Concomitant]
     Active Substance: ROSUVASTATIN CALCIUM
     Route: 048
  4. CLOPIDOGREL [Concomitant]
     Active Substance: CLOPIDOGREL BISULFATE
     Route: 048
  5. AMLOZEK [Concomitant]
     Active Substance: AMLODIPINE BESYLATE
     Route: 048
  6. MILURIT [Concomitant]
     Active Substance: ALLOPURINOL
     Route: 048
  7. LORADUR [Concomitant]
     Dosage: 5/50 MG?1/2 TBL. ONCE PER DAY
     Route: 048
  8. LANZUL [Concomitant]
     Active Substance: LANSOPRAZOLE
     Route: 065
  9. LOZAP [Concomitant]
     Route: 048
  10. FUROSEMID [Concomitant]
     Active Substance: FUROSEMIDE
  11. ZELBORAF [Suspect]
     Active Substance: VEMURAFENIB
     Route: 048
     Dates: start: 20171031, end: 20171113
  12. AVELOX [Concomitant]
     Active Substance: MOXIFLOXACIN HYDROCHLORIDE
     Route: 042
  13. FRAXIPARINE [Concomitant]
     Active Substance: NADROPARIN CALCIUM
     Route: 058
  14. APAURIN [Concomitant]
     Active Substance: DIAZEPAM
     Dosage: 1 AMPOULE
     Route: 042
  15. HYDROCORTISON [Concomitant]
     Active Substance: HYDROCORTISONE
     Route: 042

REACTIONS (4)
  - Pneumonia [Not Recovered/Not Resolved]
  - Respiratory failure [Fatal]
  - Acute interstitial pneumonitis [Not Recovered/Not Resolved]
  - Acute kidney injury [Not Recovered/Not Resolved]

NARRATIVE: CASE EVENT DATE: 20171113
